FAERS Safety Report 6270055-0 (Version None)
Quarter: 2009Q3

REPORT INFORMATION
  Report Type: 
  Country: None (occurrence: None)
  Receive Date: 20090714
  Receipt Date: 20090630
  Transmission Date: 20100115
  Serious: Yes (Disabling)
  Sender: FDA-Public Use
  Company Number: 2009AL004410

PATIENT
  Age: 31 Year
  Sex: Female

DRUGS (3)
  1. GABAPENTIN [Suspect]
     Indication: MIGRAINE WITH AURA
     Dosage: 1800 MG; PO
     Route: 048
     Dates: start: 20080601, end: 20090101
  2. LEVOTHYROXINE SODIUM [Concomitant]
  3. CITALOPRAM HYDROBROMIDE [Concomitant]

REACTIONS (4)
  - ALTERED VISUAL DEPTH PERCEPTION [None]
  - CONFUSIONAL STATE [None]
  - SUICIDAL IDEATION [None]
  - TIC [None]
